FAERS Safety Report 13120978 (Version 1)
Quarter: 2017Q1

REPORT INFORMATION
  Report Type: Spontaneous
  Country: US (occurrence: US)
  Receive Date: 20170113
  Receipt Date: 20170113
  Transmission Date: 20170428
  Serious: Yes (Hospitalization)
  Sender: FDA-Public Use
  Company Number: None

PATIENT
  Age: 68 Year
  Sex: Male
  Weight: 85 kg

DRUGS (10)
  1. GLIPIZIDE. [Concomitant]
     Active Substance: GLIPIZIDE
  2. ATORVASTATIN [Concomitant]
     Active Substance: ATORVASTATIN
  3. RIVAROXABAN [Concomitant]
     Active Substance: RIVAROXABAN
  4. INSULIN REGULAR [Concomitant]
     Active Substance: INSULIN NOS
  5. FUROSEMIDE. [Concomitant]
     Active Substance: FUROSEMIDE
  6. PAZOPANIB [Suspect]
     Active Substance: PAZOPANIB
     Indication: RENAL CANCER METASTATIC
     Route: 048
     Dates: start: 20161220
  7. METOPROLOL TARTRATE. [Concomitant]
     Active Substance: METOPROLOL TARTRATE
  8. AMIODARONE [Concomitant]
     Active Substance: AMIODARONE
  9. LISINOPRIL. [Concomitant]
     Active Substance: LISINOPRIL
  10. SPIRONOLACTONE. [Concomitant]
     Active Substance: SPIRONOLACTONE

REACTIONS (2)
  - Dyspnoea [None]
  - Chest discomfort [None]

NARRATIVE: CASE EVENT DATE: 20170110
